FAERS Safety Report 15990894 (Version 2)
Quarter: 2019Q1

REPORT INFORMATION
  Report Type: Spontaneous
  Country: US (occurrence: US)
  Receive Date: 20190221
  Receipt Date: 20190222
  Transmission Date: 20190418
  Serious: No
  Sender: FDA-Public Use
  Company Number: US-BAYER-2019-034436

PATIENT
  Age: 89 Year
  Sex: Male
  Weight: 79 kg

DRUGS (2)
  1. MIRALAX [Suspect]
     Active Substance: POLYETHYLENE GLYCOL 3350
     Indication: GASTROINTESTINAL DISORDER
     Dosage: 1 DF, QD
     Route: 048
     Dates: start: 20190208
  2. IRON [Concomitant]
     Active Substance: IRON

REACTIONS (3)
  - Drug effect delayed [Unknown]
  - Faecal volume decreased [None]
  - Inappropriate schedule of product administration [None]

NARRATIVE: CASE EVENT DATE: 201902
